FAERS Safety Report 6301130-X (Version None)
Quarter: 2009Q3

REPORT INFORMATION
  Report Type: 
  Country: None (occurrence: None)
  Receive Date: 20090807
  Receipt Date: 20090728
  Transmission Date: 20100115
  Serious: Yes (Hospitalization)
  Sender: FDA-Public Use
  Company Number: JP-PFIZER INC-2009245689

PATIENT
  Age: 86 Year

DRUGS (2)
  1. UNASYN [Suspect]
     Indication: PNEUMONIA
     Dosage: 6 G/DAY
     Route: 042
  2. DALACIN [Suspect]
     Indication: PNEUMONIA
     Dosage: 122 MG/DAY

REACTIONS (1)
  - DRUG ERUPTION [None]
